FAERS Safety Report 17287439 (Version 1)
Quarter: 2020Q1

REPORT INFORMATION
  Report Type: Spontaneous
  Country: US (occurrence: US)
  Receive Date: 20200120
  Receipt Date: 20200120
  Transmission Date: 20200409
  Serious: No
  Sender: FDA-Public Use
  Company Number: US-009507513-2001USA006426

PATIENT
  Age: 58 Year
  Sex: Female

DRUGS (2)
  1. TEMODAR [Suspect]
     Active Substance: TEMOZOLOMIDE
     Indication: BRAIN NEOPLASM MALIGNANT
     Dosage: TAKE 1 CAPSULE BY MOUTH DAILY FOR 21 DAYS OUT OF A 21 DAY CYCLE. TAKE WITH ONE 100 MG CAPSULE
     Route: 048
     Dates: start: 201912
  2. TEMODAR [Suspect]
     Active Substance: TEMOZOLOMIDE
     Indication: BRAIN NEOPLASM MALIGNANT
     Dosage: TAKE 1 CAPSULE BY MOUTH DAILY FOR 21 DAYS OUT OF A 21 DAY CYCLE. TAKE WITH ONE 20 MG CAPSULE
     Route: 048
     Dates: start: 201912

REACTIONS (1)
  - Constipation [Not Recovered/Not Resolved]

NARRATIVE: CASE EVENT DATE: 201912
